FAERS Safety Report 9447596 (Version 2)
Quarter: 2013Q3

REPORT INFORMATION
  Report Type: Report from Study
  Country: JP (occurrence: JP)
  Receive Date: 20130808
  Receipt Date: 20130906
  Transmission Date: 20140515
  Serious: Yes (Life-Threatening, Hospitalization)
  Sender: FDA-Public Use
  Company Number: JP-BAYER-2013-095483

PATIENT
  Age: 50 Year
  Sex: Female
  Weight: 48.07 kg

DRUGS (3)
  1. YAZ [Suspect]
     Indication: DYSMENORRHOEA
     Dosage: 1 DF, QD
     Route: 048
     Dates: start: 20120928, end: 20130125
  2. JULINA [Suspect]
     Dosage: DAILY DOSE 0.5 MG
     Route: 048
     Dates: start: 20120706, end: 20130107
  3. ETHINYL ESTRADIOL W/NORETHISTERONE ACETATE [Suspect]
     Dosage: UNK
     Route: 062
     Dates: end: 20120831

REACTIONS (1)
  - Breast cancer [Recovering/Resolving]
